FAERS Safety Report 23338585 (Version 4)
Quarter: 2024Q4

REPORT INFORMATION
  Report Type: Report from Study
  Country: US (occurrence: US)
  Receive Date: 20231226
  Receipt Date: 20241128
  Transmission Date: 20250115
  Serious: Yes (Hospitalization, Other)
  Sender: JOHNSON AND JOHNSON
  Company Number: US-JNJFOC-20231260137

PATIENT
  Age: 68 Year
  Sex: Female
  Weight: 54.431 kg

DRUGS (3)
  1. EPOPROSTENOL SODIUM [Suspect]
     Active Substance: EPOPROSTENOL SODIUM
     Indication: Pulmonary hypertension
     Route: 042
  2. EPOPROSTENOL SODIUM [Suspect]
     Active Substance: EPOPROSTENOL SODIUM
     Route: 042
  3. Opsumit- [Concomitant]

REACTIONS (6)
  - Device occlusion [Unknown]
  - Vascular device infection [Unknown]
  - Ventricular tachycardia [Unknown]
  - Seizure [Unknown]
  - Syncope [Unknown]
  - Underdose [Unknown]

NARRATIVE: CASE EVENT DATE: 20231031
